FAERS Safety Report 5056149-6 (Version None)
Quarter: 2006Q3

REPORT INFORMATION
  Report Type: 
  Country: None (occurrence: None)
  Receive Date: 20060720
  Receipt Date: 20060627
  Transmission Date: 20061208
  Serious: Yes (Death, Congenital Anomaly)
  Sender: FDA-Public Use
  Company Number: GB-GLAXOSMITHKLINE-B0430222A

PATIENT
  Sex: Female

DRUGS (2)
  1. COMBIVIR [Suspect]
     Dosage: 1U TWICE PER DAY
     Dates: end: 20060306
  2. KALETRA [Suspect]
     Dosage: 3U TWICE PER DAY
     Dates: end: 20060306

REACTIONS (3)
  - DOUBLE OUTLET RIGHT VENTRICLE [None]
  - STILLBIRTH [None]
  - VENTRICULAR SEPTAL DEFECT [None]
